FAERS Safety Report 19593080 (Version 3)
Quarter: 2021Q3

REPORT INFORMATION
  Report Type: Spontaneous
  Country: US (occurrence: US)
  Receive Date: 20210722
  Receipt Date: 20210930
  Transmission Date: 20211014
  Serious: Yes (Hospitalization, Other)
  Sender: FDA-Public Use
  Company Number: US-TEVA-2021-US-1934814

PATIENT
  Age: 58 Year
  Sex: Male
  Weight: 182.84 kg

DRUGS (17)
  1. CIALIS [Concomitant]
     Active Substance: TADALAFIL
     Route: 065
  2. MAGNESIUM OXIDE. [Concomitant]
     Active Substance: MAGNESIUM OXIDE
     Route: 065
  3. ULORIC [Concomitant]
     Active Substance: FEBUXOSTAT
     Route: 065
  4. LYRICA [Concomitant]
     Active Substance: PREGABALIN
     Route: 065
  5. VALSARTAN W/HYDROCHLOROTHIAZIDE TEVA [Suspect]
     Active Substance: HYDROCHLOROTHIAZIDE\VALSARTAN
     Indication: HYPERTENSION
     Dosage: STRENGTH: 320/25 MG
     Route: 048
     Dates: start: 20120926, end: 20130404
  6. VALSARTAN SOLCO [Suspect]
     Active Substance: VALSARTAN
     Indication: HYPERTENSION
     Dates: start: 20180327, end: 20180926
  7. DIOVAN HCT [Suspect]
     Active Substance: HYDROCHLOROTHIAZIDE\VALSARTAN
     Dosage: DOSE: 320?25 MG IN 2011, 2012
     Route: 065
  8. DIOVAN [Suspect]
     Active Substance: VALSARTAN
     Dosage: DOSE: 320 MG, IN 2012, 2013, 2014
     Route: 065
  9. LEVEMIR FLEXIPEN [Concomitant]
     Dosage: DOSE: 50 UNITS EVERY DAY; STRENGTH: 100 UNITS/ML (3ML)
     Route: 058
  10. FUROSEMIDE. [Concomitant]
     Active Substance: FUROSEMIDE
     Route: 048
  11. VALSARTAN OHM LABORATORIES [Suspect]
     Active Substance: VALSARTAN
     Dates: start: 20150224, end: 20160530
  12. ATORVASTATIN [Concomitant]
     Active Substance: ATORVASTATIN
     Route: 065
  13. METOPROLOL SUCCINATE. [Concomitant]
     Active Substance: METOPROLOL SUCCINATE
     Route: 065
  14. VALSARTAN OHM LABORATORIES [Suspect]
     Active Substance: VALSARTAN
     Indication: HYPERTENSION
     Dates: start: 20140815, end: 20150213
  15. VALSARTAN CAMBER PHARMACEUTICALS [Suspect]
     Active Substance: VALSARTAN
     Indication: HYPERTENSION
     Dates: start: 20160602, end: 20180325
  16. ASPIRIN. [Concomitant]
     Active Substance: ASPIRIN
     Route: 065
  17. SPIRONOLACTONE. [Concomitant]
     Active Substance: SPIRONOLACTONE
     Route: 048

REACTIONS (2)
  - B-cell lymphoma [Not Recovered/Not Resolved]
  - Renal failure [Not Recovered/Not Resolved]
